FAERS Safety Report 16817406 (Version 3)
Quarter: 2020Q3

REPORT INFORMATION
  Report Type: Spontaneous
  Country: US (occurrence: US)
  Receive Date: 20190917
  Receipt Date: 20200813
  Transmission Date: 20201102
  Serious: Yes (Other)
  Sender: FDA-Public Use
  Company Number: US-GILEAD-2019-0428040

PATIENT
  Age: 60 Year
  Sex: Female
  Weight: 90.7 kg

DRUGS (54)
  1. ATRIPLA [Suspect]
     Active Substance: EFAVIRENZ\EMTRICITABINE\TENOFOVIR DISOPROXIL FUMARATE
     Dosage: 600?200?300 MG
     Route: 048
     Dates: start: 201111, end: 20200303
  2. VOLTAREN [DICLOFENAC] [Concomitant]
     Active Substance: DICLOFENAC SODIUM
  3. PIROXICAM. [Concomitant]
     Active Substance: PIROXICAM
  4. PROVENTIL [Concomitant]
     Active Substance: ALBUTEROL
  5. DELTASONE [Concomitant]
     Active Substance: PREDNISONE
  6. LASIX [Concomitant]
     Active Substance: FUROSEMIDE
  7. LIDOCAINE. [Concomitant]
     Active Substance: LIDOCAINE
  8. NORVASC [Concomitant]
     Active Substance: AMLODIPINE BESYLATE
  9. CYMBALTA [Concomitant]
     Active Substance: DULOXETINE HYDROCHLORIDE
  10. METROGEL [Concomitant]
     Active Substance: METRONIDAZOLE
  11. SINGULAIR [Concomitant]
     Active Substance: MONTELUKAST SODIUM
  12. AMBIEN [Concomitant]
     Active Substance: ZOLPIDEM TARTRATE
  13. TYLENOL [Concomitant]
     Active Substance: ACETAMINOPHEN
  14. ZITHROMAX [Concomitant]
     Active Substance: AZITHROMYCIN DIHYDRATE
  15. CEPACOL ANESTHETIC [Concomitant]
  16. DULERA [Concomitant]
     Active Substance: FORMOTEROL FUMARATE DIHYDRATE\MOMETASONE FUROATE
  17. HYDROCODONE BITARTRATE AND ACETAMINOPHEN [Concomitant]
     Active Substance: ACETAMINOPHEN\HYDROCODONE BITARTRATE
  18. SENNA S [Concomitant]
     Active Substance: DOCUSATE SODIUM\SENNA LEAF
  19. ASPIRIN 81 [Concomitant]
     Active Substance: ASPIRIN
  20. PRINIVIL [Concomitant]
     Active Substance: LISINOPRIL
  21. PROMETHAZINE DM [Concomitant]
     Active Substance: DEXTROMETHORPHAN HYDROBROMIDE\PROMETHAZINE HYDROCHLORIDE
  22. ZOFRAN [Concomitant]
     Active Substance: ONDANSETRON HYDROCHLORIDE
  23. HYDROXYZINE [Concomitant]
     Active Substance: HYDROXYZINE HYDROCHLORIDE
  24. MAXZIDE [Concomitant]
     Active Substance: HYDROCHLOROTHIAZIDE\TRIAMTERENE
  25. FOSAMAX [Concomitant]
     Active Substance: ALENDRONATE SODIUM
  26. TOFRANIL?PM [Concomitant]
     Active Substance: IMIPRAMINE PAMOATE
  27. FLAGYL [Concomitant]
     Active Substance: METRONIDAZOLE\METRONIDAZOLE HYDROCHLORIDE
  28. ROBITUSSIN COUGH + COLD [Concomitant]
  29. SOLU?MEDROL [Concomitant]
     Active Substance: METHYLPREDNISOLONE SODIUM SUCCINATE
  30. LOMOTIL [LOPERAMIDE HYDROCHLORIDE] [Concomitant]
     Active Substance: LOPERAMIDE HYDROCHLORIDE
  31. DITROPAN [Concomitant]
     Active Substance: OXYBUTYNIN CHLORIDE
  32. VITAMIN D3 [Concomitant]
     Active Substance: CHOLECALCIFEROL
  33. HIBICLENS [Concomitant]
     Active Substance: CHLORHEXIDINE GLUCONATE
  34. MOBIC [Concomitant]
     Active Substance: MELOXICAM
  35. TERCONAZOLE. [Concomitant]
     Active Substance: TERCONAZOLE
  36. COMBIVENT RESPIMAT [Concomitant]
     Active Substance: ALBUTEROL SULFATE\IPRATROPIUM BROMIDE
  37. AFRIN [OXYMETAZOLINE] [Concomitant]
  38. VENLAFAXINE [Concomitant]
     Active Substance: VENLAFAXINE HYDROCHLORIDE
  39. NAPROXEN. [Concomitant]
     Active Substance: NAPROXEN
  40. DOCQLACE [Concomitant]
     Active Substance: DOCUSATE SODIUM
  41. NEURONTIN [Concomitant]
     Active Substance: GABAPENTIN
  42. ULTRAM [Concomitant]
     Active Substance: TRAMADOL HYDROCHLORIDE
  43. COLACE [Concomitant]
     Active Substance: DOCUSATE SODIUM
  44. VITAMIN C ACID [Concomitant]
     Active Substance: ASCORBIC ACID
  45. SPIRIVA [Concomitant]
     Active Substance: TIOTROPIUM BROMIDE MONOHYDRATE
  46. HYDROCORTISONE 1% IN ABSORBASE [Concomitant]
     Active Substance: HYDROCORTISONE
  47. NICODERM CQ [Concomitant]
     Active Substance: NICOTINE
  48. ATRIPLA [Suspect]
     Active Substance: EFAVIRENZ\EMTRICITABINE\TENOFOVIR DISOPROXIL FUMARATE
     Indication: HIV INFECTION
     Dosage: 600?200?300 MG
     Route: 048
     Dates: start: 201009, end: 201010
  49. VISTARIL [Concomitant]
     Active Substance: HYDROXYZINE PAMOATE
  50. DUONEB [Concomitant]
     Active Substance: ALBUTEROL SULFATE\IPRATROPIUM BROMIDE
  51. LOVENOX [Concomitant]
     Active Substance: ENOXAPARIN SODIUM
  52. APRESOLINE HYDROCHLORIDE [Concomitant]
     Active Substance: HYDRALAZINE HYDROCHLORIDE
  53. OSCALVIT D [Concomitant]
  54. CALCIUM CITRATE [Concomitant]
     Active Substance: CALCIUM CITRATE

REACTIONS (11)
  - Chronic kidney disease [Not Recovered/Not Resolved]
  - Multiple fractures [Unknown]
  - Osteoarthritis [Not Recovered/Not Resolved]
  - Anxiety [Unknown]
  - Pain [Unknown]
  - Bone density decreased [Unknown]
  - Anhedonia [Unknown]
  - Emotional distress [Unknown]
  - Bone decalcification [Not Recovered/Not Resolved]
  - Economic problem [Unknown]
  - Osteoporosis [Not Recovered/Not Resolved]

NARRATIVE: CASE EVENT DATE: 20160107
